FAERS Safety Report 13513834 (Version 1)
Quarter: 2017Q2

REPORT INFORMATION
  Report Type: Spontaneous
  Country: US (occurrence: US)
  Receive Date: 20170504
  Receipt Date: 20170504
  Transmission Date: 20170830
  Serious: No
  Sender: FDA-Public Use
  Company Number: US-PFIZER INC-2017196881

PATIENT
  Age: 56 Year
  Sex: Male

DRUGS (1)
  1. HYDROCORTISONE. [Suspect]
     Active Substance: HYDROCORTISONE
     Dosage: 5 MG, 3X/DAY (WITH MEALS)
     Route: 048
     Dates: start: 201512

REACTIONS (9)
  - Energy increased [Unknown]
  - Depression [Unknown]
  - Therapeutic response unexpected [Unknown]
  - Abdominal discomfort [Unknown]
  - Headache [Unknown]
  - Disturbance in attention [Unknown]
  - Feeling abnormal [Unknown]
  - Condition aggravated [Unknown]
  - Fatigue [Unknown]
